FAERS Safety Report 13099987 (Version 3)
Quarter: 2017Q1

REPORT INFORMATION
  Report Type: Spontaneous
  Country: ES (occurrence: ES)
  Receive Date: 20170110
  Receipt Date: 20170117
  Transmission Date: 20170428
  Serious: Yes (Life-Threatening, Hospitalization, Other)
  Sender: FDA-Public Use
  Company Number: ES-009507513-1409ESP011027

PATIENT
  Age: 7 Year
  Sex: Male

DRUGS (4)
  1. ALBUTEROL SULFATE. [Interacting]
     Active Substance: ALBUTEROL SULFATE
     Indication: ASTHMA
  2. TIMOLOL MALEATE. [Interacting]
     Active Substance: TIMOLOL MALEATE
     Dosage: TOPICAL IN BOTH EYES. DOSE WAS FIRST DAY AFTER ONE WEEK DOSE INTERRUPTION
     Route: 047
     Dates: start: 20130214, end: 20130214
  3. TIMOLOL MALEATE. [Interacting]
     Active Substance: TIMOLOL MALEATE
     Indication: DEVELOPMENTAL GLAUCOMA
     Dosage: TOPICAL IN BOTH EYES
     Route: 047
     Dates: start: 201211, end: 201301
  4. ALBUTEROL SULFATE. [Suspect]
     Active Substance: ALBUTEROL SULFATE
     Indication: ASTHMA
     Dosage: AS NEEDED (MAXIMUM 1 INH/8H)OCCASIONALLY
     Route: 055

REACTIONS (4)
  - Drug interaction [Recovered/Resolved]
  - Coma scale abnormal [Recovered/Resolved]
  - Loss of consciousness [Recovered/Resolved]
  - Asthma [Recovered/Resolved]

NARRATIVE: CASE EVENT DATE: 20130214
